FAERS Safety Report 20132000 (Version 1)
Quarter: 2021Q4

REPORT INFORMATION
  Report Type: Spontaneous
  Country: US (occurrence: None)
  Receive Date: 20211130
  Receipt Date: 20211130
  Transmission Date: 20220304
  Serious: Yes (Other)
  Sender: FDA-Public Use
  Company Number: None

PATIENT
  Age: 60 Year
  Sex: Male
  Weight: 98 kg

DRUGS (4)
  1. BARICITINIB [Suspect]
     Active Substance: BARICITINIB
     Indication: COVID-19
     Dosage: FREQUENCY : DAILY;?
     Route: 048
     Dates: start: 20210903, end: 20211116
  2. REMDESIVIR [Concomitant]
     Active Substance: REMDESIVIR
     Dates: start: 20210901, end: 20210909
  3. ENOXAPARIN [Concomitant]
     Active Substance: ENOXAPARIN
     Dates: start: 20210903, end: 20210907
  4. APIXABAN [Concomitant]
     Active Substance: APIXABAN
     Dates: start: 20210908, end: 20210916

REACTIONS (2)
  - Deep vein thrombosis [None]
  - COVID-19 pneumonia [None]

NARRATIVE: CASE EVENT DATE: 20210901
